FAERS Safety Report 7148822-0 (Version None)
Quarter: 2010Q4

REPORT INFORMATION
  Report Type: 
  Country: None (occurrence: None)
  Receive Date: 20101209
  Receipt Date: 20101129
  Transmission Date: 20110411
  Serious: Yes (Other)
  Sender: FDA-Public Use
  Company Number: PHHY2009AU35465

PATIENT
  Sex: Female

DRUGS (4)
  1. TASIGNA [Suspect]
     Indication: CHRONIC MYELOID LEUKAEMIA
     Dosage: 800 MG/ DAILY
     Route: 048
     Dates: start: 20090501, end: 20090601
  2. TASIGNA [Suspect]
     Dosage: 400 MG/ DAILY
     Route: 048
     Dates: end: 20100801
  3. TASIGNA [Suspect]
     Dosage: 800 MG/DAILY
     Route: 048
     Dates: start: 20090801, end: 20100901
  4. WARFARIN SODIUM [Concomitant]
     Indication: DEEP VEIN THROMBOSIS
     Dosage: UNK
     Route: 048
     Dates: start: 20070801

REACTIONS (11)
  - ABDOMINAL DISTENSION [None]
  - CONSTIPATION [None]
  - DEPRESSION [None]
  - DRUG INEFFECTIVE [None]
  - FATIGUE [None]
  - FLATULENCE [None]
  - GASTROOESOPHAGEAL REFLUX DISEASE [None]
  - IRRITABLE BOWEL SYNDROME [None]
  - NAUSEA [None]
  - OESOPHAGEAL IRRITATION [None]
  - WEIGHT INCREASED [None]
